FAERS Safety Report 5083099-1 (Version None)
Quarter: 2006Q3

REPORT INFORMATION
  Report Type: 
  Country: None (occurrence: None)
  Receive Date: 20060814
  Receipt Date: 20060725
  Transmission Date: 20061208
  Serious: Yes (Hospitalization)
  Sender: FDA-Public Use
  Company Number: 2006091884

PATIENT
  Sex: Male

DRUGS (10)
  1. DILANTIN [Suspect]
     Indication: CONVULSION
     Dosage: 400 MG, OTHER
  2. LOSEC (OMEPRAZOLE) [Concomitant]
  3. ZYPREXA [Concomitant]
  4. AVANZA (MIRTAZAPINE) [Concomitant]
  5. ACETAMINOPHEN [Concomitant]
  6. VENTOLIN [Concomitant]
  7. ASPIRIN [Concomitant]
  8. DESLORATADINE  (DESLORATADINE) [Concomitant]
  9. JEVITY (CORN OIL, ELECTROLYTES NOS, FATTY ACIDS NOS, MINERALS NOS, POT [Concomitant]
  10. NUTRISON (CARBOHYDRATES NOS, LIPIDS NOS, PROTEINS NOS) [Concomitant]

REACTIONS (2)
  - ANTICONVULSANT DRUG LEVEL DECREASED [None]
  - INCORRECT DRUG ADMINISTRATION DURATION [None]
